FAERS Safety Report 10089098 (Version 1)
Quarter: 2014Q2

REPORT INFORMATION
  Report Type: Spontaneous
  Country: US (occurrence: None)
  Receive Date: 20140418
  Receipt Date: 20140418
  Transmission Date: 20141212
  Serious: Yes (Disabling)
  Sender: FDA-Public Use
  Company Number: None

PATIENT
  Age: 55 Year
  Sex: Female
  Weight: 68.04 kg

DRUGS (1)
  1. LIDOCAINE [Suspect]
     Indication: BIOPSY
     Dosage: .03% AND . 02% SITES ONETIME PROCEDURE  GIVEN INTO/UNDER THE SKIN
     Dates: start: 20131209, end: 20131209

REACTIONS (10)
  - Suspected transmission of an infectious agent via product [None]
  - Impaired healing [None]
  - Erythema [None]
  - Skin warm [None]
  - Wound drainage [None]
  - Tenderness [None]
  - Ear pain [None]
  - Sleep disorder [None]
  - Pain in jaw [None]
  - Rash [None]
